FAERS Safety Report 6645241-8 (Version None)
Quarter: 2010Q1

REPORT INFORMATION
  Report Type: 
  Country: None (occurrence: None)
  Receive Date: 20100322
  Receipt Date: 20100310
  Transmission Date: 20100710
  Serious: Yes (Other)
  Sender: FDA-Public Use
  Company Number: PHHY2009JP02485

PATIENT
  Age: 40 Year
  Sex: Male

DRUGS (21)
  1. CYCLOSPORINE [Interacting]
     Indication: UNRELATED DONOR BONE MARROW TRANSPLANTATION THERAPY
     Dosage: 3 MG/KG/DAY
     Dates: start: 20080101
  2. METHOTREXATE [Suspect]
     Indication: UNRELATED DONOR BONE MARROW TRANSPLANTATION THERAPY
  3. TENOFOVIR [Interacting]
     Indication: HIV INFECTION
     Dosage: 300 MG, UNK
  4. LOPINAVIR [Interacting]
     Indication: HIV INFECTION
  5. RITONAVIR [Interacting]
     Indication: HIV INFECTION
  6. EMTRICITABINE [Concomitant]
     Indication: HIV INFECTION
     Dosage: 200 MG, UNK
  7. EFAVIRENZ [Concomitant]
     Indication: HIV INFECTION
     Dosage: 600 MG, UNK
  8. ETOPOSIDE [Concomitant]
     Indication: UNRELATED DONOR BONE MARROW TRANSPLANTATION THERAPY
     Dosage: 30 MG/KG, UNK
     Route: 042
  9. CYCLOPHOSPHAMIDE [Concomitant]
     Dosage: 120 MG/KG, UNK
     Route: 042
  10. IRRADIATION [Concomitant]
     Indication: UNRELATED DONOR BONE MARROW TRANSPLANTATION THERAPY
     Dosage: 12 GY, UNK
  11. GLOBULIN N [Concomitant]
     Indication: ANTIVIRAL PROPHYLAXIS
     Dosage: 5000 MG OF GLOBULIN EVERY WEEK
  12. NEUPOGEN [Concomitant]
     Dosage: 5 MICROG/KG
     Route: 041
  13. POLYMYXIN-B-SULFATE [Concomitant]
     Indication: ANTIBIOTIC PROPHYLAXIS
     Route: 048
  14. GANCICLOVIR [Concomitant]
     Route: 042
  15. FLUCONAZOLE [Concomitant]
     Indication: ANTIFUNGAL PROPHYLAXIS
     Dosage: 200 MG, UNK
  16. ACYCLOVIR [Concomitant]
     Indication: ANTIVIRAL PROPHYLAXIS
  17. SULFAMETHOXAZOLE AND TRIMETHOPRIM [Concomitant]
     Indication: ANTIFUNGAL PROPHYLAXIS
  18. ANTIVIRALS NOS [Concomitant]
     Indication: HIV TEST POSITIVE
  19. STEROIDS NOS [Concomitant]
     Indication: GRAFT VERSUS HOST DISEASE
  20. PREDNISOLONE [Concomitant]
     Dosage: 0.5 MG/KG, UNK
  21. PREDNISOLONE [Concomitant]
     Dosage: 1 MG/KG, UNK

REACTIONS (10)
  - ACUTE GRAFT VERSUS HOST DISEASE IN SKIN [None]
  - CYTOMEGALOVIRUS INFECTION [None]
  - CYTOMEGALOVIRUS TEST POSITIVE [None]
  - CYTOMEGALOVIRUS VIRAEMIA [None]
  - DRUG INTERACTION [None]
  - FEBRILE NEUTROPENIA [None]
  - IMMUNOSUPPRESSANT DRUG LEVEL INCREASED [None]
  - NAUSEA [None]
  - PYREXIA [None]
  - RENAL IMPAIRMENT [None]
